FAERS Safety Report 8946700 (Version 2)
Quarter: 2013Q1

REPORT INFORMATION
  Report Type: Spontaneous
  Country: US (occurrence: US)
  Receive Date: 20121204
  Receipt Date: 20130102
  Transmission Date: 20140127
  Serious: No
  Sender: FDA-Public Use
  Company Number: US-AMGEN-USASP2012076681

PATIENT
  Age: 46 Year
  Sex: Female
  Weight: 97.05 kg

DRUGS (4)
  1. ENBREL [Suspect]
     Indication: PSORIATIC ARTHROPATHY
     Dosage: 50 MG, QWK
     Route: 058
  2. ENBREL [Suspect]
     Indication: PSORIASIS
  3. CIMZIA [Concomitant]
     Dosage: UNK
  4. HUMIRA [Concomitant]
     Dosage: UNK

REACTIONS (7)
  - Pain [Recovered/Resolved]
  - Local swelling [Recovered/Resolved]
  - Asthenia [Recovered/Resolved]
  - Therapeutic response decreased [Unknown]
  - Arthritis [Recovering/Resolving]
  - Incorrect product storage [Unknown]
  - Psoriasis [Recovering/Resolving]
